FAERS Safety Report 7729747-6 (Version None)
Quarter: 2011Q3

REPORT INFORMATION
  Report Type: 
  Country: None (occurrence: None)
  Receive Date: 20110906
  Receipt Date: 20110826
  Transmission Date: 20111222
  Serious: Yes (Other)
  Sender: FDA-Public Use
  Company Number: JP-ROCHE-784509

PATIENT
  Sex: Male
  Weight: 59.8 kg

DRUGS (49)
  1. CAPECITABINE [Suspect]
     Dosage: IT IS ONE ADMINISTERING WEEKLY HOLIDAY MEDICINE FOR TWO WEEKS.
     Route: 048
     Dates: start: 20110107, end: 20110121
  2. OXALIPLATIN [Suspect]
     Route: 041
     Dates: start: 20101008, end: 20101008
  3. OXALIPLATIN [Suspect]
     Route: 041
     Dates: start: 20101119, end: 20101119
  4. LOPERAMIDE HCL [Concomitant]
     Route: 048
  5. BEVACIZUMAB [Suspect]
     Route: 041
     Dates: start: 20100827, end: 20100827
  6. BEVACIZUMAB [Suspect]
     Route: 041
     Dates: start: 20101008, end: 20101008
  7. OXALIPLATIN [Suspect]
     Route: 041
     Dates: start: 20100806, end: 20100806
  8. OXALIPLATIN [Suspect]
     Route: 041
     Dates: start: 20100827, end: 20100827
  9. OXALIPLATIN [Suspect]
     Route: 041
     Dates: start: 20101029, end: 20101029
  10. FAMOTIDINE [Concomitant]
     Route: 048
     Dates: start: 20100708
  11. GRANISETRON [Concomitant]
     Route: 048
     Dates: start: 20100708, end: 20101211
  12. BEVACIZUMAB [Suspect]
     Route: 041
     Dates: start: 20101119, end: 20101119
  13. BEVACIZUMAB [Suspect]
     Route: 041
     Dates: start: 20110422, end: 20110422
  14. CAPECITABINE [Suspect]
     Dosage: IT IS ONE ADMINISTERING WEEKLY HOLIDAY MEDICINE FOR TWO WEEKS.
     Route: 048
     Dates: start: 20100827, end: 20100910
  15. CAPECITABINE [Suspect]
     Dosage: IT IS ONE ADMINISTERING WEEKLY HOLIDAY MEDICINE FOR TWO WEEKS.
     Route: 048
     Dates: start: 20101210, end: 20101224
  16. DEXAMETHASONE [Concomitant]
     Route: 048
     Dates: start: 20100709, end: 20101212
  17. BEVACIZUMAB [Suspect]
     Indication: COLON CANCER METASTATIC
     Route: 041
     Dates: start: 20100708, end: 20100708
  18. CAPECITABINE [Suspect]
     Dosage: IT IS ONE ADMINISTERING WEEKLY HOLIDAY MEDICINE FOR TWO WEEKS.
     Route: 048
     Dates: start: 20101008, end: 20101022
  19. CAPECITABINE [Suspect]
     Dosage: IT IS ONE ADMINISTERING WEEKLY HOLIDAY MEDICINE FOR TWO WEEKS.
     Route: 048
     Dates: start: 20101029, end: 20101112
  20. CAPECITABINE [Suspect]
     Dosage: IT IS ONE ADMINISTERING WEEKLY HOLIDAY MEDICINE FOR TWO WEEKS.
     Route: 048
     Dates: start: 20101119, end: 20101203
  21. BEVACIZUMAB [Suspect]
     Route: 041
     Dates: start: 20110401, end: 20110401
  22. CAPECITABINE [Suspect]
     Dosage: IT IS ONE ADMINISTERING WEEKLY HOLIDAY MEDICINE FOR TWO WEEKS.
     Route: 048
     Dates: start: 20100917, end: 20101001
  23. CAPECITABINE [Suspect]
     Dosage: IT IS ONE ADMINISTERING WEEKLY HOLIDAY MEDICINE FOR TWO WEEKS.
     Route: 048
     Dates: start: 20110422, end: 20110506
  24. BEVACIZUMAB [Suspect]
     Route: 041
     Dates: start: 20101029, end: 20101029
  25. BEVACIZUMAB [Suspect]
     Route: 041
     Dates: start: 20110311, end: 20110311
  26. CAPECITABINE [Suspect]
     Dosage: IT IS ONE ADMINISTERING WEEKLY HOLIDAY MEDICINE FOR TWO WEEKS.
     Route: 048
     Dates: start: 20110128, end: 20110211
  27. WHITE PETROLATUM [Concomitant]
     Route: 061
     Dates: start: 20100708
  28. BEVACIZUMAB [Suspect]
     Route: 041
     Dates: start: 20100917, end: 20100917
  29. BEVACIZUMAB [Suspect]
     Route: 041
     Dates: start: 20101210, end: 20101210
  30. BEVACIZUMAB [Suspect]
     Route: 041
     Dates: start: 20110128, end: 20110128
  31. BEVACIZUMAB [Suspect]
     Route: 041
     Dates: start: 20110218, end: 20110218
  32. BEVACIZUMAB [Suspect]
     Route: 041
     Dates: start: 20110513, end: 20110513
  33. CAPECITABINE [Suspect]
     Dosage: IT IS ONE ADMINISTERING WEEKLY HOLIDAY MEDICINE FOR TWO WEEKS.
     Route: 048
     Dates: start: 20110218, end: 20110304
  34. CAPECITABINE [Suspect]
     Dosage: IT IS ONE ADMINISTERING WEEKLY HOLIDAY MEDICINE FOR TWO WEEKS.
     Route: 048
     Dates: start: 20110311, end: 20110325
  35. OXALIPLATIN [Suspect]
     Indication: COLON CANCER METASTATIC
     Route: 041
     Dates: start: 20100708, end: 20100708
  36. OXALIPLATIN [Suspect]
     Route: 041
     Dates: start: 20100917, end: 20100917
  37. OXALIPLATIN [Suspect]
     Route: 041
     Dates: start: 20101210, end: 20101210
  38. APREPITANT [Concomitant]
     Dosage: D2-3.
     Route: 054
     Dates: start: 20100709, end: 20101212
  39. VITAMIN A [Concomitant]
     Dosage: DOSAGE IS UNCERTAIN. DRUG NAME REPORTED AS SAHNE(VITAMIN A OIL).
     Route: 061
     Dates: start: 20100708
  40. HEPARIN [Concomitant]
     Route: 061
     Dates: start: 20100708
  41. CHLORPHENIRAMINE MALEATE [Concomitant]
     Route: 041
     Dates: start: 20100708, end: 20101210
  42. BEVACIZUMAB [Suspect]
     Route: 041
     Dates: start: 20110107, end: 20110107
  43. CAPECITABINE [Suspect]
     Indication: COLON CANCER METASTATIC
     Dosage: IT IS ONE ADMINISTERING WEEKLY HOLIDAY MEDICINE FOR TWO WEEKS
     Route: 048
     Dates: start: 20100708, end: 20100722
  44. CAPECITABINE [Suspect]
     Dosage: IT IS ONE ADMINISTERING WEEKLY HOLIDAY MEDICINE FOR TWO WEEKS.
     Route: 048
     Dates: start: 20100806, end: 20100820
  45. CAPECITABINE [Suspect]
     Dosage: IT IS ONE ADMINISTERING WEEKLY HOLIDAY MEDICINE FOR TWO WEEKS.
     Route: 048
     Dates: start: 20110401, end: 20110415
  46. CAPECITABINE [Suspect]
     Dosage: IT IS ONE ADMINISTERING WEEKLY HOLIDAY MEDICINE FOR TWO WEEKS.
     Route: 048
     Dates: start: 20110513, end: 20110527
  47. APREPITANT [Concomitant]
     Route: 054
     Dates: start: 20100708, end: 20101210
  48. GRANISETRON [Concomitant]
     Dosage: DOSE FORM INJECTABLE.
     Route: 048
     Dates: start: 20100708, end: 20101210
  49. DEXAMETHASONE SODIUM PHOSPHATE [Concomitant]
     Route: 042
     Dates: start: 20100708, end: 20101210

REACTIONS (7)
  - DIARRHOEA [None]
  - FATIGUE [None]
  - NEUROPATHY PERIPHERAL [None]
  - DYSGEUSIA [None]
  - PALMAR-PLANTAR ERYTHRODYSAESTHESIA SYNDROME [None]
  - IMPAIRED HEALING [None]
  - NAUSEA [None]
